FAERS Safety Report 7687180-X (Version None)
Quarter: 2011Q3

REPORT INFORMATION
  Report Type: 
  Country: None (occurrence: None)
  Receive Date: 20110816
  Receipt Date: 20110808
  Transmission Date: 20111222
  Serious: Yes (Hospitalization)
  Sender: FDA-Public Use
  Company Number: IT-ASTRAZENECA-2011SE47490

PATIENT
  Age: 17765 Day
  Sex: Male

DRUGS (9)
  1. TENORETIC 100 [Suspect]
     Indication: HYPERTENSION
     Dosage: TENORETIC 50 MG + 12.5 MG DAILY
     Route: 048
     Dates: start: 20060421, end: 20110421
  2. AULIN [Suspect]
     Indication: BACK PAIN
     Route: 048
     Dates: start: 20110101, end: 20110415
  3. TORADOL [Suspect]
     Indication: BACK PAIN
     Route: 048
     Dates: start: 20110325, end: 20110415
  4. TEVETENZ [Concomitant]
  5. DEURSIL [Concomitant]
  6. ARTHROTEC [Suspect]
     Indication: BACK PAIN
     Dosage: ARTROTEC 75 MG + 200 MCG MODIFIED RELEASE TAB, DAILY
     Route: 048
     Dates: start: 20110315, end: 20110325
  7. TRAMADOL HCL [Concomitant]
     Dosage: KOLIBRI 37.5 MG + 325 MG TABLETS
  8. ORUDIS [Suspect]
     Indication: BACK PAIN
     Route: 048
     Dates: start: 20110415, end: 20110420
  9. VOLTAREN [Suspect]
     Indication: BACK PAIN
     Route: 048
     Dates: start: 20110101, end: 20110415

REACTIONS (2)
  - RETROPERITONEAL FIBROSIS [None]
  - RENAL FAILURE ACUTE [None]
